FAERS Safety Report 11532869 (Version 1)
Quarter: 2015Q3

REPORT INFORMATION
  Report Type: Spontaneous
  Country: US (occurrence: US)
  Receive Date: 20150903
  Receipt Date: 20150903
  Transmission Date: 20151125
  Serious: No
  Sender: FDA-Public Use
  Company Number: US-ELI_LILLY_AND_COMPANY-US201203008025

PATIENT
  Sex: Female

DRUGS (2)
  1. HUMALOG MIX75/25 [Suspect]
     Active Substance: INSULIN LISPRO
     Indication: TYPE 2 DIABETES MELLITUS
     Dosage: 60 U, TID
  2. LEVEMIR [Concomitant]
     Active Substance: INSULIN DETEMIR
     Dosage: UNK

REACTIONS (2)
  - Diabetes mellitus inadequate control [Unknown]
  - Headache [Unknown]
